FAERS Safety Report 24723815 (Version 1)
Quarter: 2024Q4

REPORT INFORMATION
  Report Type: Spontaneous
  Country: US (occurrence: US)
  Receive Date: 20241211
  Receipt Date: 20241211
  Transmission Date: 20250114
  Serious: No
  Sender: PFIZER
  Company Number: US-PFIZER INC-PV202400145590

PATIENT

DRUGS (2)
  1. GENOTROPIN [Suspect]
     Active Substance: SOMATROPIN
     Dosage: 2.6MG AND 2.8MG UNDER THE SKIN 1 TIME A DAY, ALTERNATE
     Route: 058
  2. GENOTROPIN [Suspect]
     Active Substance: SOMATROPIN
     Dosage: 2.6MG AND 2.8MG UNDER THE SKIN 1 TIME A DAY, ALTERNATE
     Route: 058

REACTIONS (3)
  - Device use issue [Unknown]
  - Device leakage [Unknown]
  - Liquid product physical issue [Unknown]
